FAERS Safety Report 24467227 (Version 1)
Quarter: 2024Q4

REPORT INFORMATION
  Report Type: Report from Study
  Country: US (occurrence: US)
  Receive Date: 20241018
  Receipt Date: 20241018
  Transmission Date: 20250115
  Serious: No
  Sender: ROCHE
  Company Number: US-ROCHE-3568575

PATIENT

DRUGS (2)
  1. XOLAIR [Suspect]
     Active Substance: OMALIZUMAB
     Indication: Product used for unknown indication
     Route: 065
  2. ZYRTEC [Concomitant]
     Active Substance: CETIRIZINE HYDROCHLORIDE

REACTIONS (11)
  - Urticaria [Unknown]
  - Hypotension [Unknown]
  - Brain fog [Unknown]
  - Pyrexia [Unknown]
  - Fatigue [Unknown]
  - Blood immunoglobulin E increased [Unknown]
  - Tryptase increased [Unknown]
  - Gastrooesophageal reflux disease [Unknown]
  - Mast cell activation syndrome [Unknown]
  - Post-acute COVID-19 syndrome [Unknown]
  - Mechanical urticaria [Unknown]
